FAERS Safety Report 8164200-X (Version None)
Quarter: 2012Q1

REPORT INFORMATION
  Report Type: 
  Country: None (occurrence: None)
  Receive Date: 20120221
  Receipt Date: 20120210
  Transmission Date: 20120608
  Serious: Yes (Hospitalization)
  Sender: FDA-Public Use
  Company Number: FRA-CLT-2012002

PATIENT
  Age: 4 Month
  Sex: Male

DRUGS (8)
  1. NICARDIPINE HYDROCHLORIDE [Concomitant]
  2. NICARDIPINE HCL [Concomitant]
  3. ACEBUTOLOL [Concomitant]
  4. L-CARNITINE [Concomitant]
  5. VITAMIN B-12 [Concomitant]
  6. CYSTADANE - BETAINE ANHYDROUS -ORAL POWDER -S [Suspect]
     Indication: HOMOCYSTINURIA
     Dosage: 1000 MG EVERY DAY, ORAL
     Route: 048
     Dates: start: 20090729
  7. SECTRAL [Concomitant]
  8. VITAMIN B6 [Concomitant]

REACTIONS (6)
  - HAEMOLYTIC URAEMIC SYNDROME [None]
  - CONSTIPATION [None]
  - GAMMA-GLUTAMYLTRANSFERASE INCREASED [None]
  - HYPOSPADIAS [None]
  - ASPARTATE AMINOTRANSFERASE INCREASED [None]
  - ALANINE AMINOTRANSFERASE INCREASED [None]
